FAERS Safety Report 7375908-8 (Version None)
Quarter: 2011Q1

REPORT INFORMATION
  Report Type: 
  Country: None (occurrence: None)
  Receive Date: 20110325
  Receipt Date: 20110316
  Transmission Date: 20110831
  Serious: Yes (Other)
  Sender: FDA-Public Use
  Company Number: B0706961A

PATIENT
  Sex: Female

DRUGS (1)
  1. DERMOVATE OINTMENT [Suspect]
     Route: 061
     Dates: start: 20110222

REACTIONS (4)
  - HAEMORRHAGE [None]
  - PRODUCT QUALITY ISSUE [None]
  - SKIN IRRITATION [None]
  - ILL-DEFINED DISORDER [None]
